FAERS Safety Report 11147280 (Version 2)
Quarter: 2015Q2

REPORT INFORMATION
  Report Type: Spontaneous
  Country: US (occurrence: US)
  Receive Date: 20150528
  Receipt Date: 20150626
  Transmission Date: 20150821
  Serious: Yes (Hospitalization, Other)
  Sender: FDA-Public Use
  Company Number: US-TAKEDA-2015TUS006301

PATIENT
  Age: 67 Year
  Sex: Female
  Weight: 67 kg

DRUGS (3)
  1. METHOTREXATE [Suspect]
     Active Substance: METHOTREXATE
     Indication: CROHN^S DISEASE
     Dosage: 25 MG, 1/WEEK
     Route: 030
     Dates: start: 2013, end: 20150428
  2. PREDNISONE. [Suspect]
     Active Substance: PREDNISONE
     Indication: CROHN^S DISEASE
     Dosage: 10 MG, QD
     Route: 048
     Dates: start: 2013
  3. ENTYVIO [Suspect]
     Active Substance: VEDOLIZUMAB
     Indication: CROHN^S DISEASE
     Dosage: 300 MG, Q 6 WEEKS
     Route: 042
     Dates: start: 201411, end: 20150428

REACTIONS (2)
  - Pneumonia respiratory syncytial viral [Recovered/Resolved with Sequelae]
  - Acute respiratory distress syndrome [Recovered/Resolved with Sequelae]

NARRATIVE: CASE EVENT DATE: 201504
